FAERS Safety Report 7430303-8 (Version None)
Quarter: 2011Q2

REPORT INFORMATION
  Report Type: 
  Country: None (occurrence: None)
  Receive Date: 20110421
  Receipt Date: 20110418
  Transmission Date: 20111010
  Serious: Yes (Other)
  Sender: FDA-Public Use
  Company Number: BR-ELI_LILLY_AND_COMPANY-BR201103004028

PATIENT
  Sex: Male
  Weight: 92 kg

DRUGS (7)
  1. DOXAZOSIN MESYLATE [Concomitant]
     Indication: PROSTATIC DISORDER
     Dosage: 2 MG, DAILY (1/D)
     Route: 048
     Dates: start: 20060101
  2. VIAGRA [Concomitant]
     Indication: ERECTILE DYSFUNCTION
     Dosage: UNK, UNKNOWN
     Route: 065
  3. MICARDIS [Concomitant]
     Indication: HYPERTENSION
     Dosage: UNK, EACH MORNING
     Route: 048
     Dates: start: 20090101
  4. EXELON [Concomitant]
     Indication: MEMORY IMPAIRMENT
     Dosage: 10 MG, DAILY (1/D)
     Route: 061
  5. CIALIS [Suspect]
     Indication: ERECTILE DYSFUNCTION
     Dosage: 20 MG, OTHER
     Route: 048
     Dates: start: 20060101
  6. EUTIROX [Concomitant]
     Indication: THYROID DISORDER
     Dosage: 50 MG, EACH MORNING
     Route: 048
     Dates: start: 20090101
  7. MEMANTINE HYDROCHLORIDE [Concomitant]
     Indication: MEMORY IMPAIRMENT
     Dosage: 10 MG, 2/D
     Route: 048
     Dates: start: 20080101

REACTIONS (8)
  - MACULAR OEDEMA [None]
  - MACULAR DEGENERATION [None]
  - VISION BLURRED [None]
  - BLINDNESS [None]
  - INTENTIONAL DRUG MISUSE [None]
  - RETINAL VEIN OCCLUSION [None]
  - RETINAL DISORDER [None]
  - VISUAL ACUITY REDUCED [None]
